FAERS Safety Report 4837541-9 (Version None)
Quarter: 2005Q4

REPORT INFORMATION
  Report Type: 
  Country: None (occurrence: None)
  Receive Date: 20051128
  Receipt Date: 20051114
  Transmission Date: 20060501
  Serious: Yes (Hospitalization)
  Sender: FDA-Public Use
  Company Number: AU-NOVOPROD-248581

PATIENT
  Age: 69 Year
  Sex: Female

DRUGS (1)
  1. MIXTARD 30/70 PENFILL [Suspect]
     Indication: INSULIN-REQUIRING TYPE II DIABETES MELLITUS
     Dosage: 26 IU, QD

REACTIONS (4)
  - APHASIA [None]
  - BLOOD GLUCOSE DECREASED [None]
  - FEELING COLD [None]
  - HYPOKINESIA [None]
